FAERS Safety Report 9936507 (Version 2)
Quarter: 2015Q1

REPORT INFORMATION
  Report Type: Spontaneous
  Country: US (occurrence: US)
  Receive Date: 20140228
  Receipt Date: 20150304
  Transmission Date: 20150721
  Serious: Yes (Hospitalization, Other)
  Sender: FDA-Public Use
  Company Number: US-AMGEN-USASP2014005501

PATIENT
  Age: 61 Year
  Sex: Male
  Weight: 106 kg

DRUGS (2)
  1. ENBREL [Suspect]
     Active Substance: ETANERCEPT
     Dosage: UNK
     Route: 065
  2. ENBREL [Suspect]
     Active Substance: ETANERCEPT
     Indication: RHEUMATOID ARTHRITIS
     Dosage: 50 MG, QWK
     Route: 058
     Dates: start: 201307

REACTIONS (4)
  - Intervertebral disc protrusion [Recovered/Resolved]
  - Back pain [Not Recovered/Not Resolved]
  - Sciatica [Not Recovered/Not Resolved]
  - Cyst [Recovered/Resolved]

NARRATIVE: CASE EVENT DATE: 201309
